FAERS Safety Report 17814557 (Version 4)
Quarter: 2023Q1

REPORT INFORMATION
  Report Type: Report from Study
  Country: US (occurrence: US)
  Receive Date: 20200522
  Receipt Date: 20230120
  Transmission Date: 20230417
  Serious: Yes (Hospitalization)
  Sender: FDA-Public Use
  Company Number: US-BAUSCH-BL-2020-014958

PATIENT
  Age: 57 Year
  Sex: Male
  Weight: 93.070 kg

DRUGS (4)
  1. XIFAXAN [Suspect]
     Active Substance: RIFAXIMIN
     Indication: Hepatic encephalopathy
     Route: 048
     Dates: start: 2020, end: 202005
  2. XIFAXAN [Suspect]
     Active Substance: RIFAXIMIN
     Route: 048
     Dates: start: 202005, end: 20210627
  3. XIFAXAN [Suspect]
     Active Substance: RIFAXIMIN
     Route: 065
     Dates: end: 20230111
  4. LACTULOSE [Concomitant]
     Active Substance: LACTULOSE
     Indication: Product used for unknown indication
     Route: 048

REACTIONS (5)
  - Loss of consciousness [Unknown]
  - Hospitalisation [Unknown]
  - Product use issue [Unknown]
  - Inability to afford medication [Unknown]
  - Insurance issue [Unknown]

NARRATIVE: CASE EVENT DATE: 20200101
